FAERS Safety Report 17205256 (Version 1)
Quarter: 2019Q4

REPORT INFORMATION
  Report Type: Spontaneous
  Country: PL (occurrence: PL)
  Receive Date: 20191227
  Receipt Date: 20191227
  Transmission Date: 20200122
  Serious: Yes (Hospitalization, Other)
  Sender: FDA-Public Use
  Company Number: PL-AUROBINDO-AUR-APL-2019-099561

PATIENT
  Age: 65 Year
  Sex: Female

DRUGS (40)
  1. VALSARTAN. [Suspect]
     Active Substance: VALSARTAN
     Indication: SOMATIC DYSFUNCTION
     Dosage: UNK
     Route: 065
  2. QUETIAPINE. [Suspect]
     Active Substance: QUETIAPINE
     Indication: AFFECTIVE DISORDER
  3. OLANZAPINE. [Suspect]
     Active Substance: OLANZAPINE
     Indication: BIPOLAR II DISORDER
  4. ZOLPIDEM [Suspect]
     Active Substance: ZOLPIDEM TARTRATE
     Indication: INSOMNIA
  5. PAROXETINE. [Suspect]
     Active Substance: PAROXETINE
     Indication: BIPOLAR II DISORDER
     Dosage: 40 MILLIGRAM, ONCE A DAY (UP TO 40 MG/DAY)
     Route: 065
  6. PAROXETINE. [Suspect]
     Active Substance: PAROXETINE
     Indication: ANXIETY
  7. MONTELUKAST [Suspect]
     Active Substance: MONTELUKAST SODIUM
     Indication: SOMATIC SYMPTOM DISORDER
     Dosage: UNK
     Route: 065
  8. NEBIVOLOL. [Suspect]
     Active Substance: NEBIVOLOL
     Indication: SOMATIC SYMPTOM DISORDER
     Dosage: UNK
     Route: 065
  9. CLOBETASOL PROPIONATE. [Suspect]
     Active Substance: CLOBETASOL PROPIONATE
     Indication: SOMATIC SYMPTOM DISORDER
  10. MIDAZOLAM [Suspect]
     Active Substance: MIDAZOLAM HYDROCHLORIDE
     Indication: BIPOLAR II DISORDER
  11. ESOMEPRAZOLE SODIUM. [Suspect]
     Active Substance: ESOMEPRAZOLE SODIUM
     Indication: SOMATIC DYSFUNCTION
  12. ZOLPIDEM [Suspect]
     Active Substance: ZOLPIDEM TARTRATE
     Indication: SLEEP DISORDER
  13. ESOMEPRAZOLE SODIUM. [Suspect]
     Active Substance: ESOMEPRAZOLE SODIUM
     Indication: SOMATIC SYMPTOM DISORDER
     Dosage: UNK
     Route: 065
  14. QUETIAPINE. [Suspect]
     Active Substance: QUETIAPINE
     Indication: BIPOLAR II DISORDER
     Dosage: 200 MILLIGRAM, ONCE A DAY
     Route: 065
  15. VENLAFAXINE [Suspect]
     Active Substance: VENLAFAXINE HYDROCHLORIDE
     Indication: AFFECTIVE DISORDER
  16. VENLAFAXINE [Suspect]
     Active Substance: VENLAFAXINE HYDROCHLORIDE
     Indication: BIPOLAR DISORDER
  17. FLUTICASONE. [Suspect]
     Active Substance: FLUTICASONE
     Indication: SOMATIC DYSFUNCTION
  18. ESOMEPRAZOLE MAGNESIUM DIHYDRATE [Suspect]
     Active Substance: ESOMEPRAZOLE MAGNESIUM
     Indication: PRODUCT USED FOR UNKNOWN INDICATION
     Dosage: UNK
     Route: 065
  19. MIDAZOLAM [Suspect]
     Active Substance: MIDAZOLAM HYDROCHLORIDE
     Indication: ANXIETY
  20. ZOLPIDEM [Suspect]
     Active Substance: ZOLPIDEM TARTRATE
     Indication: BIPOLAR II DISORDER
     Dosage: UNK
     Route: 065
  21. ALPRAZOLAM. [Suspect]
     Active Substance: ALPRAZOLAM
     Indication: ANXIETY DISORDER
  22. HYDROCHLOROTHIAZIDE. [Suspect]
     Active Substance: HYDROCHLOROTHIAZIDE
     Indication: SOMATIC SYMPTOM DISORDER
     Dosage: UNK
     Route: 005
  23. QUETIAPINE. [Suspect]
     Active Substance: QUETIAPINE
     Indication: ANXIETY
  24. OLANZAPINE. [Suspect]
     Active Substance: OLANZAPINE
     Indication: FEAR
  25. OLANZAPINE. [Suspect]
     Active Substance: OLANZAPINE
     Indication: ANXIETY DISORDER
  26. VENLAFAXINE [Suspect]
     Active Substance: VENLAFAXINE HYDROCHLORIDE
     Indication: ANXIETY
     Dosage: 300 MILLIGRAM, ONCE A DAY (UP TO 300 MG/DAY, DOSES WERE GRADUALLY REDUCED UNTIL 300MG)
     Route: 065
  27. ALPRAZOLAM. [Suspect]
     Active Substance: ALPRAZOLAM
     Indication: ANXIETY
     Dosage: UNK
     Route: 065
  28. BUPROPION. [Concomitant]
     Active Substance: BUPROPION
     Indication: PRODUCT USED FOR UNKNOWN INDICATION
     Dosage: 300 MILLIGRAM, ONCE A DAY
     Route: 065
  29. OLANZAPINE. [Suspect]
     Active Substance: OLANZAPINE
     Indication: ANXIETY
     Dosage: UNK
     Route: 065
  30. ZOLPIDEM [Suspect]
     Active Substance: ZOLPIDEM TARTRATE
     Indication: ANXIETY
  31. LAMOTRIGINE. [Suspect]
     Active Substance: LAMOTRIGINE
     Indication: ANXIETY
  32. ALPRAZOLAM. [Suspect]
     Active Substance: ALPRAZOLAM
     Indication: FEAR
  33. MIDAZOLAM [Suspect]
     Active Substance: MIDAZOLAM HYDROCHLORIDE
     Indication: SLEEP DISORDER
     Dosage: UNK
     Route: 065
  34. PAROXETINE. [Suspect]
     Active Substance: PAROXETINE
     Indication: AFFECTIVE DISORDER
  35. FLUTICASONE. [Suspect]
     Active Substance: FLUTICASONE
     Indication: SOMATIC SYMPTOM DISORDER
     Dosage: UNK
     Route: 016
  36. CLONAZEPAM. [Suspect]
     Active Substance: CLONAZEPAM
     Indication: ANXIETY
     Dosage: UNK
     Route: 065
  37. LAMOTRIGINE. [Suspect]
     Active Substance: LAMOTRIGINE
     Indication: BIPOLAR DISORDER
     Dosage: 200 MG, QD (GRADUALLY INCREASED DOSES UP TO 200 MG PER DAY)
     Route: 065
  38. LAMOTRIGINE. [Suspect]
     Active Substance: LAMOTRIGINE
     Indication: AFFECTIVE DISORDER
  39. CLOBETASOL PROPIONATE. [Suspect]
     Active Substance: CLOBETASOL PROPIONATE
     Indication: SOMATIC DYSFUNCTION
     Dosage: UNK (APPLIED EXTERNALLY)
     Route: 061
  40. SALMETEROL [Suspect]
     Active Substance: SALMETEROL
     Indication: PRODUCT USED FOR UNKNOWN INDICATION
     Dosage: UNK
     Route: 065

REACTIONS (9)
  - Drug ineffective [Unknown]
  - Hepatic enzyme increased [Recovering/Resolving]
  - Anxiety [Recovering/Resolving]
  - Depression [Recovering/Resolving]
  - Therapeutic product effect incomplete [Unknown]
  - Product use in unapproved indication [Unknown]
  - Insomnia [Recovering/Resolving]
  - Drug-induced liver injury [Recovered/Resolved]
  - Off label use [Unknown]
